FAERS Safety Report 11909388 (Version 2)
Quarter: 2016Q4

REPORT INFORMATION
  Report Type: Spontaneous
  Country: US (occurrence: US)
  Receive Date: 20160112
  Receipt Date: 20161011
  Transmission Date: 20170206
  Serious: No
  Sender: FDA-Public Use
  Company Number: US-TEVA-604814USA

PATIENT
  Age: 54 Year
  Sex: Female

DRUGS (1)
  1. ZECUITY [Suspect]
     Active Substance: SUMATRIPTAN SUCCINATE
     Route: 062

REACTIONS (5)
  - Application site pain [Not Recovered/Not Resolved]
  - Application site pruritus [Unknown]
  - Incorrect drug administration duration [Unknown]
  - Application site erythema [Not Recovered/Not Resolved]
  - Application site inflammation [Not Recovered/Not Resolved]

NARRATIVE: CASE EVENT DATE: 20151026
